FAERS Safety Report 8820512 (Version 2)
Quarter: 2014Q2

REPORT INFORMATION
  Report Type: Spontaneous
  Country: US (occurrence: US)
  Receive Date: 20121002
  Receipt Date: 20131003
  Transmission Date: 20141212
  Serious: Yes (Other)
  Sender: FDA-Public Use
  Company Number: US-COVIDIEN/TYCO HEALTHCARE/MALLINCKRODT-T201203439

PATIENT
  Age: 55 Year
  Sex: Male

DRUGS (3)
  1. EXALGO EXTENDED RELEASE [Suspect]
     Indication: NECK PAIN
     Dosage: 16 MG, TOOK ONE TAB
     Dates: start: 20120908, end: 20120908
  2. NUCYNTA [Concomitant]
     Indication: NECK PAIN
     Dosage: 100 MG, BID
     Dates: start: 201202, end: 20120907
  3. DIABETIC DRUG [Concomitant]
     Indication: DIABETES MELLITUS
     Dosage: UNK

REACTIONS (1)
  - Respiratory depression [Recovered/Resolved]
